FAERS Safety Report 13714106 (Version 1)
Quarter: 2017Q3

REPORT INFORMATION
  Report Type: Spontaneous
  Country: PL (occurrence: PL)
  Receive Date: 20170704
  Receipt Date: 20170704
  Transmission Date: 20171127
  Serious: Yes (Other)
  Sender: FDA-Public Use
  Company Number: PL-RECORDATI RARE DISEASES-PL-R13005-17-00119

PATIENT
  Sex: Male

DRUGS (8)
  1. ETOPOSIDE. [Suspect]
     Active Substance: ETOPOSIDE
     Indication: RHABDOMYOSARCOMA
     Route: 065
  2. CYCLOPHOSPHAMIDE. [Suspect]
     Active Substance: CYCLOPHOSPHAMIDE
     Indication: RHABDOMYOSARCOMA
     Route: 065
  3. VINBLASTINE [Suspect]
     Active Substance: VINBLASTINE
     Indication: RHABDOMYOSARCOMA
     Route: 065
  4. DACTINOMYCIN [Suspect]
     Active Substance: DACTINOMYCIN
     Indication: RHABDOMYOSARCOMA
     Route: 065
  5. DOXORUBICIN [Suspect]
     Active Substance: DOXORUBICIN
     Indication: RHABDOMYOSARCOMA
     Route: 065
  6. IFOSFAMIDE. [Suspect]
     Active Substance: IFOSFAMIDE
     Indication: RHABDOMYOSARCOMA
     Route: 065
  7. VINCRISTINE [Suspect]
     Active Substance: VINCRISTINE
     Indication: RHABDOMYOSARCOMA
     Route: 065
  8. CARBOPLATIN. [Suspect]
     Active Substance: CARBOPLATIN
     Indication: RHABDOMYOSARCOMA
     Route: 065

REACTIONS (2)
  - Urinary tract infection fungal [Unknown]
  - Bone marrow failure [Unknown]
